FAERS Safety Report 5154746-0 (Version None)
Quarter: 2006Q4

REPORT INFORMATION
  Report Type: 
  Country: None (occurrence: None)
  Receive Date: 20061115
  Receipt Date: 20061115
  Transmission Date: 20070319
  Serious: Yes (Other)
  Sender: FDA-Public Use
  Company Number: None

PATIENT
  Age: 11 Month
  Sex: Male
  Weight: 11.9 kg

DRUGS (1)
  1. FER-GEN-SOL [Suspect]
     Indication: ANAEMIA
     Dosage: 44 MG ELEMENTAL FE  DAILY  PO
     Route: 048
     Dates: start: 20060821, end: 20060821

REACTIONS (3)
  - HYPOXIA [None]
  - LIP SWELLING [None]
  - STRIDOR [None]
